APPROVED DRUG PRODUCT: DIANEAL LOW CALCIUM W/ DEXTROSE 1.5% IN PLASTIC CONTAINER
Active Ingredient: CALCIUM CHLORIDE; DEXTROSE; MAGNESIUM CHLORIDE; SODIUM CHLORIDE; SODIUM LACTATE
Strength: 18.3MG/100ML;1.5GM/100ML;5.08MG/100ML;538MG/100ML;448MG/100ML
Dosage Form/Route: SOLUTION;INTRAPERITONEAL
Application: N020183 | Product #001 | TE Code: AT
Applicant: VANTIVE US HEALTHCARE LLC
Approved: Dec 4, 1992 | RLD: Yes | RS: No | Type: RX